FAERS Safety Report 22174262 (Version 2)
Quarter: 2023Q2

REPORT INFORMATION
  Report Type: Other
  Country: AU (occurrence: None)
  Receive Date: 20230405
  Receipt Date: 20230406
  Transmission Date: 20230721
  Serious: No
  Sender: FDA-Public Use
  Company Number: AU-ROCHE-3324170

PATIENT
  Sex: Female

DRUGS (1)
  1. OCRELIZUMAB [Suspect]
     Active Substance: OCRELIZUMAB
     Indication: Multiple sclerosis
     Route: 042
     Dates: start: 20230331, end: 20230331

REACTIONS (2)
  - Fatigue [Recovering/Resolving]
  - COVID-19 [Recovered/Resolved]
